FAERS Safety Report 8806558 (Version 3)
Quarter: 2014Q1

REPORT INFORMATION
  Report Type: Spontaneous
  Country: US (occurrence: US)
  Receive Date: 20120925
  Receipt Date: 20140326
  Transmission Date: 20141002
  Serious: Yes (Other)
  Sender: FDA-Public Use
  Company Number: US-BAYER-2012-097195

PATIENT
  Age: 31 Year
  Sex: Female
  Weight: 121 kg

DRUGS (9)
  1. YAZ [Suspect]
     Dosage: UNK
     Dates: start: 20030901, end: 2009
  2. YASMIN [Suspect]
     Dosage: UNK
     Dates: start: 20030901, end: 2009
  3. OCELLA [Suspect]
     Dosage: UNK
     Dates: start: 2001, end: 2009
  4. ARMOUR THYROID [Concomitant]
     Dosage: 60 MG, UNK
  5. CITALOPRAM [Concomitant]
     Dosage: 40 MG, UNK
  6. ANAFRANIL [Concomitant]
     Dosage: 25 TO 75 MG 3 TIMES A DAY
  7. PRISTIQ [Concomitant]
     Dosage: 50 MG DAILY
  8. TRAZODONE [Concomitant]
     Dosage: 20 MG 4 PER DAY
  9. BUSPAR [Concomitant]
     Dosage: 15 MG 2 PER DAY

REACTIONS (9)
  - Cholelithiasis [None]
  - Cholecystitis chronic [None]
  - Injury [None]
  - Pain [None]
  - General physical health deterioration [None]
  - Emotional distress [None]
  - Anxiety [None]
  - Anhedonia [None]
  - Pain [None]
